FAERS Safety Report 9174612 (Version 1)
Quarter: 2013Q1

REPORT INFORMATION
  Report Type: Report from Study
  Country: MX (occurrence: MX)
  Receive Date: 20130320
  Receipt Date: 20130320
  Transmission Date: 20140127
  Serious: Yes (Hospitalization, Disabling)
  Sender: FDA-Public Use
  Company Number: MX-JNJFOC-20110709614

PATIENT
  Age: 51 Year
  Sex: Female
  Weight: 40.5 kg

DRUGS (14)
  1. GOLIMUMAB [Suspect]
     Indication: RHEUMATOID ARTHRITIS
     Route: 042
     Dates: start: 20110524
  2. GOLIMUMAB [Suspect]
     Indication: RHEUMATOID ARTHRITIS
     Route: 042
     Dates: start: 20100720
  3. METHOTREXATE [Concomitant]
     Dates: end: 20110719
  4. LOPERAMIDE [Concomitant]
     Route: 048
     Dates: start: 20110626, end: 20110709
  5. FOLIC ACID [Concomitant]
     Indication: PROPHYLAXIS
     Dates: start: 20100603
  6. HYPROMELLOSE [Concomitant]
     Indication: SJOGREN^S SYNDROME
     Route: 061
     Dates: start: 20100905
  7. RANITIDINE [Concomitant]
     Route: 048
     Dates: start: 20100723
  8. LIPOLAC [Concomitant]
     Indication: SJOGREN^S SYNDROME
     Dosage: 0.2 EVERY DAY
     Route: 061
     Dates: start: 20110408
  9. VITAMIN B COMPLEX [Concomitant]
     Indication: VITAMIN SUPPLEMENTATION
     Route: 048
     Dates: start: 20101013
  10. PARACETAMOL [Concomitant]
     Indication: RHEUMATOID ARTHRITIS
     Route: 048
     Dates: start: 20101111
  11. SYSTANE [Concomitant]
     Indication: SJOGREN^S SYNDROME
     Route: 061
     Dates: start: 20110408
  12. DICLOFENAC [Concomitant]
     Indication: RHEUMATOID ARTHRITIS
     Route: 048
     Dates: start: 20101111
  13. MICONAZOLE [Concomitant]
     Route: 061
     Dates: start: 20110317, end: 20110712
  14. CLINORIL [Concomitant]

REACTIONS (1)
  - Device related infection [Not Recovered/Not Resolved]
